FAERS Safety Report 25683881 (Version 1)
Quarter: 2025Q3

REPORT INFORMATION
  Report Type: Spontaneous
  Country: US (occurrence: US)
  Receive Date: 20250814
  Receipt Date: 20250814
  Transmission Date: 20251021
  Serious: No
  Sender: ALEXION PHARMACEUTICALS
  Company Number: US-AstraZeneca-CH-00930482A

PATIENT
  Sex: Male

DRUGS (1)
  1. BREZTRI [Suspect]
     Active Substance: BUDESONIDE\FORMOTEROL\GLYCOPYRROLATE
     Route: 065

REACTIONS (7)
  - Pain [Unknown]
  - Product dose omission issue [Unknown]
  - Adverse reaction [Unknown]
  - Adverse drug reaction [Unknown]
  - Chest pain [Unknown]
  - No adverse event [Unknown]
  - Lung disorder [Unknown]
